FAERS Safety Report 15282151 (Version 2)
Quarter: 2018Q3

REPORT INFORMATION
  Report Type: Spontaneous
  Country: JP (occurrence: JP)
  Receive Date: 20180815
  Receipt Date: 20180912
  Transmission Date: 20181010
  Serious: No
  Sender: FDA-Public Use
  Company Number: JP-ASTRAZENECA-2018SE66823

PATIENT
  Age: 49 Year
  Sex: Female

DRUGS (2)
  1. PROCATEROL [Concomitant]
     Active Substance: PROCATEROL HYDROCHLORIDE
     Dosage: DOSE UNKNOWN
     Route: 048
  2. SYMBICORT [Suspect]
     Active Substance: BUDESONIDE\FORMOTEROL FUMARATE DIHYDRATE
     Indication: ASTHMA
     Dosage: 2 DF EVERY DAY
     Route: 055
     Dates: start: 20180515

REACTIONS (1)
  - No adverse event [Unknown]
